FAERS Safety Report 4603361-3 (Version None)
Quarter: 2005Q2

REPORT INFORMATION
  Report Type: 
  Country: None (occurrence: None)
  Receive Date: 20050223
  Receipt Date: 20041103
  Transmission Date: 20051028
  Serious: No
  Sender: FDA-Public Use
  Company Number: 210191

PATIENT
  Age: 59 Year
  Sex: Male

DRUGS (3)
  1. RAPTIVA [Suspect]
     Indication: PSORIASIS
     Dosage: SEE IMAGE    SUBCUTANEOUS
     Route: 058
     Dates: start: 20041024, end: 20041024
  2. RAPTIVA [Suspect]
     Indication: PSORIASIS
     Dosage: SEE IMAGE    SUBCUTANEOUS
     Route: 058
     Dates: start: 20041031
  3. . [Concomitant]

REACTIONS (1)
  - HEADACHE [None]
